FAERS Safety Report 14757182 (Version 1)
Quarter: 2018Q2

REPORT INFORMATION
  Report Type: Spontaneous
  Country: US (occurrence: US)
  Receive Date: 20180413
  Receipt Date: 20180413
  Transmission Date: 20180711
  Serious: No
  Sender: FDA-Public Use
  Company Number: US-BION-006639

PATIENT
  Age: 41 Year
  Sex: Male
  Weight: 167.8 kg

DRUGS (1)
  1. NAPROXEN SODIUM. [Suspect]
     Active Substance: NAPROXEN SODIUM
     Indication: HEADACHE
     Dosage: ONE TO TWO NAPROXEN SODIUM 220 SOFT CAPSULES ONCE DAILY AS NEEDED
     Route: 048
     Dates: start: 201707

REACTIONS (3)
  - Expired product administered [Not Recovered/Not Resolved]
  - Tongue discomfort [Recovered/Resolved]
  - Wrong technique in product usage process [Not Recovered/Not Resolved]

NARRATIVE: CASE EVENT DATE: 20170905
